FAERS Safety Report 24413644 (Version 2)
Quarter: 2024Q4

REPORT INFORMATION
  Report Type: Report from Study
  Country: US (occurrence: US)
  Receive Date: 20241008
  Receipt Date: 20241118
  Transmission Date: 20250115
  Serious: Yes (Other)
  Sender: BIOGEN
  Company Number: US-BIOGEN-2024BI01285373

PATIENT
  Age: 78 Year
  Sex: Female

DRUGS (1)
  1. VUMERITY [Suspect]
     Active Substance: DIROXIMEL FUMARATE
     Indication: Multiple sclerosis
     Dosage: MAINTENANCE DOSE
     Route: 050
     Dates: start: 20240402

REACTIONS (2)
  - Brain neoplasm [Not Recovered/Not Resolved]
  - Salivary gland neoplasm [Not Recovered/Not Resolved]

NARRATIVE: CASE EVENT DATE: 20240926
